FAERS Safety Report 18180342 (Version 1)
Quarter: 2020Q3

REPORT INFORMATION
  Report Type: Spontaneous
  Country: JP (occurrence: JP)
  Receive Date: 20200821
  Receipt Date: 20200821
  Transmission Date: 20201103
  Serious: Yes (Other)
  Sender: FDA-Public Use
  Company Number: JP-PFIZER INC-2020319673

PATIENT
  Age: 1 Year
  Sex: Male

DRUGS (2)
  1. METHYLPREDNISOLONE SODIUM SUCCINATE. [Suspect]
     Active Substance: METHYLPREDNISOLONE SODIUM SUCCINATE
     Dosage: UNK
     Route: 041
  2. LACTOSE [Suspect]
     Active Substance: LACTOSE
     Dosage: UNK

REACTIONS (2)
  - Reaction to excipient [Recovering/Resolving]
  - Anaphylactic reaction [Recovering/Resolving]
